FAERS Safety Report 13450025 (Version 1)
Quarter: 2017Q2

REPORT INFORMATION
  Report Type: Spontaneous
  Country: US (occurrence: US)
  Receive Date: 20170417
  Receipt Date: 20170417
  Transmission Date: 20170830
  Serious: No
  Sender: FDA-Public Use
  Company Number: US-BION-20160515

PATIENT
  Age: 75 Year
  Sex: Male
  Weight: 79.38 kg

DRUGS (2)
  1. ALEVE [Suspect]
     Active Substance: NAPROXEN SODIUM
     Indication: ARTHRALGIA
     Dosage: 2 DF IN THE MORNING, 1 DF IN THE EVENING
     Route: 048
     Dates: start: 20160912
  2. ALEVE [Suspect]
     Active Substance: NAPROXEN SODIUM
     Indication: MUSCULOSKELETAL PAIN
     Dosage: 2 DF IN THE MORNING, 1 DF IN THE EVENING
     Route: 048
     Dates: start: 20160912

REACTIONS (2)
  - Drug prescribing error [Unknown]
  - Expired product administered [Unknown]

NARRATIVE: CASE EVENT DATE: 20160912
